FAERS Safety Report 8971200 (Version 2)
Quarter: 2013Q1

REPORT INFORMATION
  Report Type: Spontaneous
  Country: US (occurrence: US)
  Receive Date: 20121217
  Receipt Date: 20130228
  Transmission Date: 20140127
  Serious: Yes (Life-Threatening, Hospitalization, Disabling, Other)
  Sender: FDA-Public Use
  Company Number: US-GLAXOSMITHKLINE-A1005089A

PATIENT
  Age: 29 Year
  Sex: Male

DRUGS (8)
  1. AVODART [Suspect]
     Indication: HAIR GROWTH ABNORMAL
     Route: 048
  2. LITHIUM [Concomitant]
  3. ABILIFY [Concomitant]
  4. GABAPENTIN [Concomitant]
  5. WELLBUTRIN [Concomitant]
  6. LEXAPRO [Concomitant]
  7. MELATONIN [Concomitant]
  8. LAMICTAL [Concomitant]

REACTIONS (2)
  - Depressive symptom [Recovering/Resolving]
  - Off label use [Unknown]
